FAERS Safety Report 9709080 (Version 1)
Quarter: 2013Q4

REPORT INFORMATION
  Report Type: Spontaneous
  Country: US (occurrence: US)
  Receive Date: 20131125
  Receipt Date: 20131125
  Transmission Date: 20140711
  Serious: Yes (Other)
  Sender: FDA-Public Use
  Company Number: US-MYLANLABS-2013S1025870

PATIENT
  Age: 53 Year
  Sex: Male
  Weight: 100 kg

DRUGS (1)
  1. KETAMINE [Suspect]
     Indication: SEDATIVE THERAPY
     Dosage: TOTAL DOSE 200-700MG
     Route: 030

REACTIONS (2)
  - Increased upper airway secretion [Recovering/Resolving]
  - Respiratory depression [Recovering/Resolving]
